FAERS Safety Report 8355711-2 (Version None)
Quarter: 2012Q2

REPORT INFORMATION
  Report Type: 
  Country: None (occurrence: None)
  Receive Date: 20120510
  Receipt Date: 20120501
  Transmission Date: 20120825
  Serious: Yes (Hospitalization)
  Sender: FDA-Public Use
  Company Number: JPI-P-021070

PATIENT
  Age: 54 Year
  Sex: Male
  Weight: 95.2554 kg

DRUGS (10)
  1. PAROXETINE HCL [Concomitant]
  2. XYREM [Suspect]
     Indication: NARCOLEPSY
     Dosage: SEE IMAGE
     Route: 048
     Dates: start: 20110825
  3. XYREM [Suspect]
     Indication: NARCOLEPSY
     Dosage: SEE IMAGE
     Route: 048
     Dates: start: 20090112
  4. METOPROLOL TARTRATE [Concomitant]
  5. OMEPRAZOLE [Concomitant]
  6. LISINOPRIL AND HYDROCHLOROTHIAZIDE [Concomitant]
  7. WARFARIN SODIUM [Concomitant]
  8. PRAVASTATIN SODIUM [Concomitant]
  9. TAMSULOSIN HYDROCHLORIDE [Concomitant]
  10. AMIODARONE HCL [Concomitant]

REACTIONS (2)
  - ATRIAL FIBRILLATION [None]
  - CARDIAC OPERATION [None]
